FAERS Safety Report 7129915-0 (Version None)
Quarter: 2010Q4

REPORT INFORMATION
  Report Type: 
  Country: None (occurrence: None)
  Receive Date: 20101130
  Receipt Date: 20100819
  Transmission Date: 20110411
  Serious: Yes (Other)
  Sender: FDA-Public Use
  Company Number: US-AMGEN-QUU432838

PATIENT

DRUGS (5)
  1. NPLATE [Suspect]
     Indication: IDIOPATHIC THROMBOCYTOPENIC PURPURA
     Dosage: 8 A?G/KG, QWK
     Dates: start: 20080801
  2. CORTICOSTEROID NOS [Concomitant]
     Dosage: UNK UNK, UNK
     Dates: start: 19901001
  3. IMMU-G [Concomitant]
     Dosage: UNK UNK, UNK
     Dates: start: 20070609
  4. VINCRISTINE SULFATE [Concomitant]
     Dosage: UNK UNK, UNK
     Dates: start: 20100409, end: 20100414
  5. RITUXIMAB [Concomitant]
     Dosage: UNK UNK, UNK
     Dates: start: 20041029, end: 20080404

REACTIONS (1)
  - DRUG INEFFECTIVE [None]
